FAERS Safety Report 6614365-3 (Version None)
Quarter: 2010Q1

REPORT INFORMATION
  Report Type: 
  Country: None (occurrence: None)
  Receive Date: 20100304
  Receipt Date: 20100222
  Transmission Date: 20100710
  Serious: Yes (Other)
  Sender: FDA-Public Use
  Company Number: US-WYE-H13734410

PATIENT
  Age: 39 Year
  Sex: Male
  Weight: 59.02 kg

DRUGS (2)
  1. ADVIL COLD AND SINUS [Suspect]
     Indication: NASOPHARYNGITIS
     Dosage: UNKNOWN
     Route: 048
  2. ADVIL COLD AND SINUS [Suspect]
     Dosage: 2 CAPLETS X 1
     Route: 048
     Dates: start: 20100221, end: 20100221

REACTIONS (4)
  - CHEST PAIN [None]
  - CONVULSION [None]
  - DYSPNOEA [None]
  - LOSS OF CONSCIOUSNESS [None]
